FAERS Safety Report 13361098 (Version 1)
Quarter: 2017Q1

REPORT INFORMATION
  Report Type: Spontaneous
  Country: DE (occurrence: DE)
  Receive Date: 20170322
  Receipt Date: 20170322
  Transmission Date: 20170429
  Serious: Yes (Death, Other)
  Sender: FDA-Public Use
  Company Number: DE-B.I. PHARMACEUTICALS,INC./RIDGEFIELD-2017-BI-015844

PATIENT
  Age: 67 Year
  Sex: Male
  Weight: 90 kg

DRUGS (2)
  1. GILOTRIF [Suspect]
     Active Substance: AFATINIB
     Indication: NON-SMALL CELL LUNG CANCER
     Route: 048
     Dates: start: 201608, end: 20170123
  2. GILOTRIF [Suspect]
     Active Substance: AFATINIB
     Indication: EGFR GENE MUTATION

REACTIONS (3)
  - Hepatic failure [Unknown]
  - Hepatic vein thrombosis [Fatal]
  - Hepatic infarction [Unknown]

NARRATIVE: CASE EVENT DATE: 20170123
